APPROVED DRUG PRODUCT: CEFADROXIL
Active Ingredient: CEFADROXIL/CEFADROXIL HEMIHYDRATE
Strength: EQ 500MG BASE
Dosage Form/Route: CAPSULE;ORAL
Application: A062291 | Product #001
Applicant: SANDOZ INC
Approved: Approved Prior to Jan 1, 1982 | RLD: No | RS: No | Type: DISCN